FAERS Safety Report 20246330 (Version 1)
Quarter: 2021Q4

REPORT INFORMATION
  Report Type: Spontaneous
  Country: US (occurrence: US)
  Receive Date: 20211229
  Receipt Date: 20211229
  Transmission Date: 20220303
  Serious: No
  Sender: FDA-Public Use
  Company Number: US-PERRIGO-21US008857

PATIENT
  Age: 71 Year
  Sex: Female
  Weight: 99.773 kg

DRUGS (27)
  1. GUAIFENESIN [Suspect]
     Active Substance: GUAIFENESIN
     Indication: Respiratory tract congestion
     Dosage: 600 MG, SINGLE
     Route: 048
     Dates: start: 20210625, end: 20210625
  2. ATENOLOL [Concomitant]
     Active Substance: ATENOLOL
     Indication: Pulmonary hypertension
     Dosage: UNKNOWN, UNKNOWN
     Route: 065
  3. ATENOLOL [Concomitant]
     Active Substance: ATENOLOL
     Indication: Atrial fibrillation
  4. AMIODARONE [Concomitant]
     Active Substance: AMIODARONE
     Indication: Atrial fibrillation
     Dosage: 200 MG, UNKNOWN
     Route: 065
     Dates: start: 20210524
  5. AMIODARONE [Concomitant]
     Active Substance: AMIODARONE
     Indication: Atrial flutter
  6. CEQUA [Concomitant]
     Active Substance: CYCLOSPORINE
     Indication: Dry eye
     Dosage: UNKNOWN, UNKNOWN
     Route: 065
     Dates: start: 20210607
  7. TRAZODONE [Concomitant]
     Active Substance: TRAZODONE HYDROCHLORIDE
     Indication: Insomnia
     Dosage: UNKNOWN, UNKNOWN
     Route: 065
  8. PANTOPRAZOLE [Concomitant]
     Active Substance: PANTOPRAZOLE
     Indication: Gastrooesophageal reflux disease
     Dosage: UNKNOWN, UNKNOWN
     Route: 065
  9. LUTEIN DEFENCE [Concomitant]
     Indication: Supplementation therapy
     Dosage: UNKNOWN, UNKNOWN
     Route: 065
  10. VITAMIN D3 [Concomitant]
     Active Substance: CHOLECALCIFEROL
     Indication: Supplementation therapy
     Dosage: UNKNOWN, UNKNOWN
     Route: 065
  11. TYLENOL                            /00020001/ [Concomitant]
     Indication: Sinus headache
     Dosage: 650 MG, PRN
     Route: 048
  12. TYLENOL                            /00020001/ [Concomitant]
     Indication: Back pain
  13. LYCOPENE [Concomitant]
     Active Substance: LYCOPENE
     Indication: Routine health maintenance
     Dosage: 10 MG, BID
     Route: 065
  14. FLUTICASONE [Concomitant]
     Active Substance: FLUTICASONE
     Indication: Dust allergy
     Dosage: 1 SPRAY EACH NOSTRIL, UNKNOWN
     Route: 045
  15. FLUTICASONE [Concomitant]
     Active Substance: FLUTICASONE
     Indication: Seasonal allergy
  16. ROSUVASTATIN                       /01588602/ [Concomitant]
     Indication: Blood cholesterol increased
     Dosage: UNKNOWN, UNKNOWN
     Route: 065
  17. POTASSIUM [Concomitant]
     Active Substance: POTASSIUM
     Indication: Supplementation therapy
     Dosage: 99 MG, UNKNOWN
     Route: 065
  18. ELIQUIS [Concomitant]
     Active Substance: APIXABAN
     Indication: Atrial fibrillation
     Dosage: 5 MG, UNKNOWN
     Route: 065
  19. COENZYME Q10 [Concomitant]
     Active Substance: DIETARY SUPPLEMENT\UBIDECARENONE
     Indication: Product used for unknown indication
     Dosage: 100 MG, UNKNOWN
     Route: 065
  20. SELENIUM [Concomitant]
     Active Substance: SELENIUM
     Indication: Routine health maintenance
     Dosage: 200 MCG, UNKNOWN
     Route: 065
  21. VITAMINS [Concomitant]
     Active Substance: VITAMINS
     Indication: Supplementation therapy
     Dosage: 1 TABLET, 4 TIMES WEEKLY
     Route: 065
  22. L CARNITINE                        /00878601/ [Concomitant]
     Indication: Routine health maintenance
     Dosage: 500 MG, BID
     Route: 065
  23. MAGNESIUM [Concomitant]
     Active Substance: MAGNESIUM
     Indication: Supplementation therapy
     Dosage: 250, QD
     Route: 065
  24. HYOSCYAMINE SULFATE [Concomitant]
     Active Substance: HYOSCYAMINE SULFATE
     Indication: Dyspepsia
     Dosage: UNKNOWN, PRN
     Route: 065
  25. HYOSCYAMINE SULFATE [Concomitant]
     Active Substance: HYOSCYAMINE SULFATE
     Indication: Abdominal pain upper
  26. PREMARIN [Concomitant]
     Active Substance: ESTROGENS, CONJUGATED
     Indication: Menopause
     Dosage: 1.5 G, TWICE WEEKLY
     Route: 067
  27. GABAPENTIN [Concomitant]
     Active Substance: GABAPENTIN
     Indication: Nerve compression
     Dosage: 600 MG, NIGHTLY
     Route: 065

REACTIONS (8)
  - Abdominal discomfort [Recovered/Resolved]
  - Paranasal sinus discomfort [Recovered/Resolved]
  - Condition aggravated [Recovered/Resolved]
  - Pollakiuria [Recovered/Resolved]
  - Headache [Recovered/Resolved]
  - Decreased appetite [Recovered/Resolved]
  - Chills [Recovered/Resolved]
  - Diarrhoea [Recovered/Resolved]

NARRATIVE: CASE EVENT DATE: 20210626
